FAERS Safety Report 7835349-3 (Version None)
Quarter: 2011Q4

REPORT INFORMATION
  Report Type: 
  Country: None (occurrence: None)
  Receive Date: 20111024
  Receipt Date: 20111013
  Transmission Date: 20120403
  Serious: Yes (Disabling, Other)
  Sender: FDA-Public Use
  Company Number: US-ASTRAZENECA-2010SE61380

PATIENT
  Age: 47 Year
  Sex: Female

DRUGS (13)
  1. PRENAVITE [Concomitant]
  2. MIRALAX [Concomitant]
     Indication: CONSTIPATION
  3. MORPHINE SULFATE [Concomitant]
     Dosage: 1 TO 2 TABLETS EVERY 6 TO 8 HOURS AS NEEDED
  4. VENLAFAXINE [Concomitant]
     Indication: DEPRESSION
  5. CALCITRATE CALCIUM PLUS VITAMIN D SUPPLEMENT [Concomitant]
  6. NABUMETONE [Concomitant]
  7. NEXIUM [Suspect]
     Indication: GASTROOESOPHAGEAL REFLUX DISEASE
     Route: 048
     Dates: start: 20100811
  8. PRILOSEC [Suspect]
     Route: 048
  9. ALZOPRAM [Concomitant]
     Indication: ANXIETY
     Dosage: 1 TO 2 TABLETS THREE TIMES A DAY (PRN)
  10. ZOLPIDEM [Concomitant]
     Indication: SLEEP DISORDER
  11. WAL-ITIN [Concomitant]
     Indication: ALLERGIC SINUSITIS
  12. SUMATRIPTAN SUCCINATE [Concomitant]
     Indication: MIGRAINE
  13. AMITRIPTYLINE HCL [Concomitant]
     Indication: MIGRAINE PROPHYLAXIS

REACTIONS (2)
  - INTERVERTEBRAL DISC PROTRUSION [None]
  - DRUG HYPERSENSITIVITY [None]
